FAERS Safety Report 4784931-9 (Version None)
Quarter: 2005Q3

REPORT INFORMATION
  Report Type: 
  Country: None (occurrence: None)
  Receive Date: 20050929
  Receipt Date: 20050929
  Transmission Date: 20060218
  Serious: Yes (Other)
  Sender: FDA-Public Use
  Company Number: None

PATIENT
  Age: 15 Year
  Sex: Female

DRUGS (3)
  1. GAMUNEX 10 GRAM VIAL TALERCIS BIOTHERAPEUTICS [Suspect]
     Indication: IMMUNODEFICIENCY
     Dosage: 15 GRAMS MONHLY IV
     Route: 042
  2. GAMUNEX5 GRAM VIAL TALECRIS BIOTHERAPEUTICS [Suspect]
  3. ... [Suspect]

REACTIONS (5)
  - DECREASED ACTIVITY [None]
  - DRUG INEFFECTIVE [None]
  - HEADACHE [None]
  - NAUSEA [None]
  - RETCHING [None]
